FAERS Safety Report 6989475-1 (Version None)
Quarter: 2010Q3

REPORT INFORMATION
  Report Type: 
  Country: None (occurrence: None)
  Receive Date: 20100916
  Receipt Date: 20091201
  Transmission Date: 20110219
  Serious: Yes (Hospitalization, Other)
  Sender: FDA-Public Use
  Company Number: SE-PFIZER INC-2009304624

PATIENT
  Sex: Female
  Weight: 68 kg

DRUGS (7)
  1. LYRICA [Suspect]
     Indication: DIABETIC NEUROPATHY
     Dosage: 300 MG, 2X/DAY
     Route: 048
     Dates: start: 20080101, end: 20091113
  2. HUMALOG [Concomitant]
     Dosage: UNK
  3. FURIX [Concomitant]
     Dosage: UNK
  4. ASPIRIN [Concomitant]
     Dosage: UNK
  5. ULTRACORTENOL [Concomitant]
     Dosage: UNK
  6. OXASCAND [Concomitant]
     Dosage: UNK
  7. GLUCAGON [Concomitant]
     Dosage: UNK

REACTIONS (8)
  - ALTERED STATE OF CONSCIOUSNESS [None]
  - BREAKTHROUGH PAIN [None]
  - CONFUSIONAL STATE [None]
  - DYSARTHRIA [None]
  - DYSGRAPHIA [None]
  - FALL [None]
  - HALLUCINATION [None]
  - MUSCLE SPASMS [None]
